FAERS Safety Report 26147339 (Version 1)
Quarter: 2025Q4

REPORT INFORMATION
  Report Type: Other
  Country: EU (occurrence: EU)
  Receive Date: 20251211
  Receipt Date: 20251211
  Transmission Date: 20260118
  Serious: Yes (Other)
  Sender: Integrated Therapeutic Solutions
  Company Number: EU-Integrated Therapeutic Solutions Inc.-2190382

PATIENT
  Age: 38 Year
  Sex: Female

DRUGS (1)
  1. PYLERA [Suspect]
     Active Substance: BISMUTH SUBCITRATE POTASSIUM\METRONIDAZOLE\TETRACYCLINE HYDROCHLORIDE
     Indication: Helicobacter gastritis
     Dates: start: 20240710, end: 20240711

REACTIONS (6)
  - Dyspnoea [Unknown]
  - Rash pruritic [Not Recovered/Not Resolved]
  - Headache [Unknown]
  - Rash maculo-papular [Not Recovered/Not Resolved]
  - Eye irritation [Unknown]
  - Palatal oedema [Unknown]

NARRATIVE: CASE EVENT DATE: 20240711
